FAERS Safety Report 19058694 (Version 1)
Quarter: 2021Q1

REPORT INFORMATION
  Report Type: Spontaneous
  Country: FR (occurrence: FR)
  Receive Date: 20210325
  Receipt Date: 20210325
  Transmission Date: 20210420
  Serious: Yes (Hospitalization)
  Sender: FDA-Public Use
  Company Number: NVSC2021FR059403

PATIENT
  Age: 80 Year
  Sex: Female

DRUGS (3)
  1. BISOPROLOL [Suspect]
     Active Substance: BISOPROLOL
     Indication: ATRIAL FIBRILLATION
     Dosage: 10 MG, QD (MATIN ET MIDI)
     Route: 048
     Dates: start: 20210214
  2. LOVENOX [Suspect]
     Active Substance: ENOXAPARIN SODIUM
     Indication: ATRIAL FIBRILLATION
     Dosage: UNK (NON RENSEIGN?E)
     Route: 058
     Dates: start: 20210216
  3. DIGOXINE [Suspect]
     Active Substance: DIGOXIN
     Indication: ATRIAL FIBRILLATION
     Dosage: UNK (NON RENSEIGN?E)
     Route: 048
     Dates: start: 20210216

REACTIONS (1)
  - Bullous haemorrhagic dermatosis [Not Recovered/Not Resolved]

NARRATIVE: CASE EVENT DATE: 20210222
